FAERS Safety Report 5344203-0 (Version None)
Quarter: 2007Q2

REPORT INFORMATION
  Report Type: 
  Country: None (occurrence: None)
  Receive Date: 20070531
  Receipt Date: 20070531
  Transmission Date: 20071010
  Serious: Yes (Disabling)
  Sender: FDA-Public Use
  Company Number: None

PATIENT
  Age: 48 Year
  Sex: Female
  Weight: 102.0593 kg

DRUGS (1)
  1. ATENOLOL [Suspect]
     Indication: HEART RATE IRREGULAR
     Dosage: 1/2 TABLET 1 X DAY PO
     Route: 048
     Dates: start: 20070401, end: 20070430

REACTIONS (3)
  - OTOTOXICITY [None]
  - TINNITUS [None]
  - VESTIBULAR DISORDER [None]
